FAERS Safety Report 14994738 (Version 3)
Quarter: 2018Q4

REPORT INFORMATION
  Report Type: Spontaneous
  Country: JP (occurrence: JP)
  Receive Date: 20180611
  Receipt Date: 20181221
  Transmission Date: 20190204
  Serious: Yes (Other)
  Sender: FDA-Public Use
  Company Number: PHJP2018JP011974

PATIENT
  Age: 74 Year
  Sex: Male

DRUGS (6)
  1. VOTRIENT [Suspect]
     Active Substance: PAZOPANIB HYDROCHLORIDE
     Dosage: 400 MG, QD
     Route: 048
     Dates: start: 201606
  2. VOTRIENT [Suspect]
     Active Substance: PAZOPANIB HYDROCHLORIDE
     Dosage: 200 MG, QOD
     Route: 048
     Dates: start: 201608
  3. VOTRIENT [Suspect]
     Active Substance: PAZOPANIB HYDROCHLORIDE
     Dosage: 200 MG, QD
     Route: 048
     Dates: start: 201610
  4. VOTRIENT [Suspect]
     Active Substance: PAZOPANIB HYDROCHLORIDE
     Dosage: 200 MG, UNK
     Route: 048
     Dates: start: 201705
  5. VOTRIENT [Suspect]
     Active Substance: PAZOPANIB HYDROCHLORIDE
     Indication: RENAL CANCER
     Dosage: 600 MG, QD
     Route: 048
     Dates: start: 201605
  6. VOTRIENT [Suspect]
     Active Substance: PAZOPANIB HYDROCHLORIDE
     Dosage: 200 MG, QOD
     Route: 048
     Dates: start: 201704

REACTIONS (11)
  - Haemoptysis [Unknown]
  - Muscular weakness [Recovering/Resolving]
  - Metastases to central nervous system [Unknown]
  - Hypothyroidism [Recovering/Resolving]
  - Neck mass [Unknown]
  - Hypertension [Recovering/Resolving]
  - Hilar lymphadenopathy [Unknown]
  - Aortic aneurysm rupture [Recovering/Resolving]
  - Renal cancer [Unknown]
  - Malignant neoplasm progression [Unknown]
  - Metastases to thorax [Unknown]

NARRATIVE: CASE EVENT DATE: 201605
